FAERS Safety Report 7277799-2 (Version None)
Quarter: 2011Q1

REPORT INFORMATION
  Report Type: 
  Country: None (occurrence: None)
  Receive Date: 20110207
  Receipt Date: 20110124
  Transmission Date: 20110831
  Serious: Yes (Hospitalization)
  Sender: FDA-Public Use
  Company Number: US-ACTELION-A-US2011-44319

PATIENT

DRUGS (1)
  1. TRACLEER [Suspect]
     Indication: PULMONARY ARTERIAL HYPERTENSION
     Dosage: UNK MG, UNK
     Route: 048
     Dates: start: 20090101

REACTIONS (4)
  - DIABETES MELLITUS INADEQUATE CONTROL [None]
  - BLOOD PRESSURE DIASTOLIC DECREASED [None]
  - BLOOD GLUCOSE FLUCTUATION [None]
  - FALL [None]
